FAERS Safety Report 8174586-8 (Version None)
Quarter: 2012Q1

REPORT INFORMATION
  Report Type: 
  Country: None (occurrence: None)
  Receive Date: 20120229
  Receipt Date: 20120227
  Transmission Date: 20120608
  Serious: No
  Sender: FDA-Public Use
  Company Number: US-PFIZER INC-2012052765

PATIENT
  Sex: Female
  Weight: 90.7 kg

DRUGS (11)
  1. LIPITOR [Suspect]
     Indication: BLOOD TRIGLYCERIDES INCREASED
     Dosage: 20 MG, DAILY
     Dates: end: 20111201
  2. ACAI [Concomitant]
     Indication: VITAMIN SUPPLEMENTATION
     Dosage: UNK
  3. ROBAXIN [Concomitant]
     Indication: MUSCLE SPASMS
     Dosage: 750MG THREE TIMES A DAY
  4. GLYBURIDE [Concomitant]
     Indication: DIABETES MELLITUS
     Dosage: 3MG HALF A TABLET DAILY
  5. FISH OIL [Concomitant]
     Dosage: UNK
  6. ATORVASTATIN CALCIUM [Suspect]
     Indication: BLOOD TRIGLYCERIDES INCREASED
     Dosage: 20 MG, DAILY
     Dates: start: 20111201
  7. GLUCOPHAGE [Concomitant]
     Indication: DIABETES MELLITUS
     Dosage: 1000MG TWO TIMES A DAY
  8. ALPRAZOLAM [Concomitant]
     Indication: ANXIETY
     Dosage: 0.5 MG, DAILY
  9. CALCIUM [Concomitant]
     Dosage: UNK, DAILY
  10. VITAMIN E [Concomitant]
     Dosage: UNK
  11. VITAMIN D [Concomitant]
     Dosage: 50000 IU, WEEKLY

REACTIONS (1)
  - URTICARIA [None]
